FAERS Safety Report 4498688-2 (Version None)
Quarter: 2004Q3

REPORT INFORMATION
  Report Type: 
  Country: None (occurrence: None)
  Receive Date: 20040927
  Receipt Date: 20040621
  Transmission Date: 20050211
  Serious: No
  Sender: FDA-Public Use
  Company Number: USA040670698

PATIENT
  Age: 8 Year
  Sex: Male
  Weight: 66 kg

DRUGS (1)
  1. STRATTERA [Suspect]
     Dosage: 40 MG/ 1DAY
     Dates: start: 20030601

REACTIONS (7)
  - ABDOMINAL PAIN UPPER [None]
  - ANGER [None]
  - DRUG INEFFECTIVE [None]
  - FATIGUE [None]
  - HEADACHE [None]
  - IRRITABILITY [None]
  - SOMNOLENCE [None]
